FAERS Safety Report 6221865-7 (Version None)
Quarter: 2009Q2

REPORT INFORMATION
  Report Type: 
  Country: None (occurrence: None)
  Receive Date: 20090611
  Receipt Date: 20070925
  Transmission Date: 20091009
  Serious: Yes (Other)
  Sender: FDA-Public Use
  Company Number: US-ASTRAZENECA-2007UW09457

PATIENT
  Age: 27 Year
  Sex: Female
  Weight: 105.2 kg

DRUGS (6)
  1. SEROQUEL [Suspect]
     Route: 048
     Dates: start: 20010101
  2. SEROQUEL [Suspect]
     Dosage: 50-100 MG
     Route: 048
     Dates: start: 20020101
  3. RISPERDAL [Suspect]
     Dates: start: 20030101, end: 20060101
  4. RISPERDAL [Suspect]
     Dosage: 0.5-2 MG
     Route: 048
     Dates: start: 20050809, end: 20051213
  5. ABILIFY [Concomitant]
     Dosage: HALF AM, HALF PM, 1 HS
     Route: 048
     Dates: start: 20060227
  6. TEGRETOL [Concomitant]
     Dosage: 300-450 MG
     Route: 048
     Dates: start: 20050809

REACTIONS (4)
  - ABORTION SPONTANEOUS [None]
  - DIABETES MELLITUS [None]
  - DRUG EXPOSURE DURING PREGNANCY [None]
  - TYPE 2 DIABETES MELLITUS [None]
